FAERS Safety Report 19709242 (Version 1)
Quarter: 2021Q3

REPORT INFORMATION
  Report Type: Spontaneous
  Country: GB (occurrence: GB)
  Receive Date: 20210817
  Receipt Date: 20210817
  Transmission Date: 20211014
  Serious: Yes (Disabling)
  Sender: FDA-Public Use
  Company Number: GB-MYLANLABS-2021M1051081

PATIENT
  Age: 33 Year
  Sex: Female

DRUGS (1)
  1. CITALOPRAM [Suspect]
     Active Substance: CITALOPRAM HYDROBROMIDE
     Indication: DEPRESSION
     Dosage: 20 MILLIGRAM
     Route: 048
     Dates: start: 20210611, end: 20210804

REACTIONS (4)
  - Sexual dysfunction [Recovering/Resolving]
  - Premature menopause [Recovering/Resolving]
  - Blood prolactin increased [Unknown]
  - Dizziness [Unknown]

NARRATIVE: CASE EVENT DATE: 20210611
